FAERS Safety Report 7168962-X (Version None)
Quarter: 2010Q4

REPORT INFORMATION
  Report Type: 
  Country: None (occurrence: None)
  Receive Date: 20101216
  Receipt Date: 20100114
  Transmission Date: 20110411
  Serious: No
  Sender: FDA-Public Use
  Company Number: US-AMGEN-KDL385892

PATIENT

DRUGS (3)
  1. ENBREL [Suspect]
     Indication: PSORIASIS
     Dosage: 50 MG, 2 TIMES/WK
  2. LITHIUM [Concomitant]
     Dosage: 1500 MG, UNK
  3. VALPROATE SEMISODIUM [Concomitant]
     Dosage: 2000 MG, UNK

REACTIONS (1)
  - PSORIASIS [None]
